FAERS Safety Report 7349802-2 (Version None)
Quarter: 2011Q1

REPORT INFORMATION
  Report Type: 
  Country: None (occurrence: None)
  Receive Date: 20110223
  Receipt Date: 20110209
  Transmission Date: 20110831
  Serious: Yes (Death, Hospitalization)
  Sender: FDA-Public Use
  Company Number: 2011PROUSA00180

PATIENT
  Age: 77 Year
  Sex: Male

DRUGS (5)
  1. MORPHINE [Concomitant]
  2. PROVENGE [Suspect]
  3. PROVENGE [Suspect]
     Indication: PROSTATE CANCER METASTATIC
     Dosage: 250 ML, SINGLE, INTRAVENOUS
     Route: 042
     Dates: start: 20101108, end: 20101108
  4. PROVENGE [Suspect]
     Indication: PROSTATE CANCER METASTATIC
     Dosage: 250 ML, SINGLE, INTRAVENOUS
     Route: 042
     Dates: start: 20101011, end: 20101011
  5. PROVENGE [Suspect]
     Indication: PROSTATE CANCER METASTATIC
     Dosage: 250 ML, SINGLE, INTRAVENOUS
     Route: 042
     Dates: start: 20101025, end: 20101025

REACTIONS (6)
  - CARDIAC ARREST [None]
  - RESPIRATORY FAILURE [None]
  - DEVICE DISLOCATION [None]
  - CHILLS [None]
  - TREMOR [None]
  - PROSTATE CANCER METASTATIC [None]
